FAERS Safety Report 5328537-1 (Version None)
Quarter: 2007Q2

REPORT INFORMATION
  Report Type: 
  Country: None (occurrence: None)
  Receive Date: 20070518
  Receipt Date: 20070507
  Transmission Date: 20071010
  Serious: Yes (Other)
  Sender: FDA-Public Use
  Company Number: US-AVENTIS-200713393US

PATIENT
  Age: 46 Year
  Sex: Female

DRUGS (24)
  1. APIDRA [Suspect]
     Dosage: DOSE: SLIDING SCALE
     Dates: start: 20060501
  2. OPTICLIK GREY [Suspect]
     Dates: start: 20060501
  3. LANTUS [Suspect]
     Dates: start: 20060401
  4. OPTICLIK (INSULIN INJECTION PEN) [Suspect]
     Dates: start: 20060401
  5. PREDNISONE TAB [Suspect]
     Indication: ASTHMA
  6. SINGULAIR [Concomitant]
     Dosage: DOSE: UNK
  7. PROTONIX [Concomitant]
     Dosage: DOSE: UNK
  8. NITROGLYCERIN [Concomitant]
     Dosage: DOSE: PRN
     Route: 060
  9. VALIUM [Concomitant]
     Dosage: DOSE: UNK
  10. EPIPEN [Concomitant]
     Dosage: DOSE: UNK
  11. VICODIN [Concomitant]
     Dosage: DOSE: UNK
  12. PULMICORT [Concomitant]
     Dosage: DOSE: UNK
  13. DYRENIUM [Concomitant]
     Dosage: DOSE: UNK
  14. CROMOLYN SODIUM [Concomitant]
     Dosage: DOSE: UNK
  15. FORADIL                            /00958002/ [Concomitant]
     Dosage: DOSE: UNK
  16. VOLMAX                             /00139501/ [Concomitant]
     Dosage: DOSE: UNK
  17. MYCELEX [Concomitant]
     Dosage: DOSE: UNK
  18. METHOTREXATE [Concomitant]
     Dosage: DOSE: UNK
  19. ZOFRAN [Concomitant]
     Dosage: DOSE: UNK
  20. CARDIZEM [Concomitant]
     Dosage: DOSE: UNK
  21. FOLIC ACID [Concomitant]
     Dosage: DOSE: UNK
  22. FORTEO [Concomitant]
     Dosage: DOSE: UNK
  23. LIDOCAINE 2% NEBULIZER [Concomitant]
     Dosage: DOSE: LIDOCAINE 2% VIA NEBULIZER
  24. DONNATAL [Concomitant]
     Dosage: DOSE: UNK

REACTIONS (2)
  - GLAUCOMA [None]
  - HYPERGLYCAEMIA [None]
